FAERS Safety Report 15034606 (Version 1)
Quarter: 2018Q2

REPORT INFORMATION
  Report Type: Spontaneous
  Country: FR (occurrence: FR)
  Receive Date: 20180620
  Receipt Date: 20180620
  Transmission Date: 20180711
  Serious: Yes (Death)
  Sender: FDA-Public Use
  Company Number: FR-TEVA-2018-FR-910000

PATIENT
  Age: 51 Year
  Sex: Female

DRUGS (4)
  1. CLOMIPRAMINE (CHLORHYDRATE DE) [Suspect]
     Active Substance: CLOMIPRAMINE HYDROCHLORIDE
     Dates: start: 20150329
  2. VENLAFAXINE [Suspect]
     Active Substance: VENLAFAXINE HYDROCHLORIDE
     Dates: start: 20150329
  3. DIHYDROCODEINE [Suspect]
     Active Substance: DIHYDROCODEINE
     Dates: start: 20150329
  4. CYAMEMAZINE [Suspect]
     Active Substance: CYAMEMAZINE
     Dates: start: 20150329

REACTIONS (1)
  - Asphyxia [Fatal]
